FAERS Safety Report 9215207 (Version 1)
Quarter: 2013Q2

REPORT INFORMATION
  Report Type: Spontaneous
  Country: US (occurrence: US)
  Receive Date: 20130405
  Receipt Date: 20130405
  Transmission Date: 20140414
  Serious: Yes (Other)
  Sender: FDA-Public Use
  Company Number: CHPA2013US005774

PATIENT
  Age: 58 Year
  Sex: Female

DRUGS (10)
  1. EXCEDRIN EXTRA STRENGTH [Suspect]
     Indication: BACK PAIN
     Dosage: 2 DF, PRN
     Route: 048
  2. EXCEDRIN EXTRA STRENGTH [Suspect]
     Indication: MIGRAINE
  3. EXCEDRIN EXTRA STRENGTH [Suspect]
     Indication: HEADACHE
  4. EXCEDRIN MIGRAINE [Suspect]
     Indication: MIGRAINE
     Dosage: 2 UNK, PRN
     Route: 048
  5. EXCEDRIN UNKNOWN [Suspect]
     Dosage: 2 UNK, PRN
     Route: 048
  6. ASPIRIN [Concomitant]
  7. NEUROTIN//GABAPENTIN [Concomitant]
  8. ANTIHYPERTENSIVES [Concomitant]
     Indication: THROMBOSIS
  9. ANTIHYPERTENSIVES [Concomitant]
     Indication: ARTERIAL OCCLUSIVE DISEASE
  10. NODOZ [Concomitant]
     Indication: SOMNOLENCE
     Dosage: 2 DF, PRN

REACTIONS (4)
  - Thrombosis [Not Recovered/Not Resolved]
  - Arterial occlusive disease [Not Recovered/Not Resolved]
  - Fibromyalgia [Not Recovered/Not Resolved]
  - Insomnia [Not Recovered/Not Resolved]
